FAERS Safety Report 23427131 (Version 2)
Quarter: 2024Q1

REPORT INFORMATION
  Report Type: Spontaneous
  Country: GB (occurrence: GB)
  Receive Date: 20240122
  Receipt Date: 20240208
  Transmission Date: 20240410
  Serious: Yes (Death)
  Sender: FDA-Public Use
  Company Number: None

PATIENT
  Age: 77 Year
  Sex: Male

DRUGS (12)
  1. TOCILIZUMAB [Suspect]
     Active Substance: TOCILIZUMAB
     Indication: Rheumatoid arthritis
     Route: 065
     Dates: start: 20230925, end: 20231220
  2. CARBOCYSTEINE [Concomitant]
     Active Substance: CARBOCYSTEINE
  3. FOLIC ACID [Concomitant]
     Active Substance: FOLIC ACID
     Dates: start: 20210720, end: 20231220
  4. LANSOPRAZOLE [Concomitant]
     Active Substance: LANSOPRAZOLE
  5. LISINOPRIL [Concomitant]
     Active Substance: LISINOPRIL
  6. METHOTREXATE [Concomitant]
     Active Substance: METHOTREXATE
     Indication: Rheumatoid arthritis
     Dates: start: 20210720, end: 20231220
  7. ACETAMINOPHEN [Concomitant]
     Active Substance: ACETAMINOPHEN
  8. FLUTICASONE FUROATE\VILANTEROL TRIFENATATE [Concomitant]
     Active Substance: FLUTICASONE FUROATE\VILANTEROL TRIFENATATE
  9. ALBUTEROL [Concomitant]
     Active Substance: ALBUTEROL
  10. TIOTROPIUM BROMIDE [Concomitant]
     Active Substance: TIOTROPIUM BROMIDE
  11. VITAMIN D [Concomitant]
     Active Substance: VITAMIN D NOS
  12. NAPROXEN [Concomitant]
     Active Substance: NAPROXEN

REACTIONS (3)
  - Pulmonary sepsis [Fatal]
  - Empyema [Fatal]
  - Dyspnoea [Unknown]

NARRATIVE: CASE EVENT DATE: 20231220
